FAERS Safety Report 23230409 (Version 1)
Quarter: 2023Q4

REPORT INFORMATION
  Report Type: Spontaneous
  Country: US (occurrence: US)
  Receive Date: 20231127
  Receipt Date: 20231127
  Transmission Date: 20240109
  Serious: No
  Sender: FDA-Public Use
  Company Number: US-002147023-NVSC2023US173211

PATIENT
  Sex: Female

DRUGS (9)
  1. BETAMETHASONE [Suspect]
     Active Substance: BETAMETHASONE\BETAMETHASONE DIPROPIONATE
     Indication: Psoriasis
     Dosage: UNK
     Route: 065
  2. CLINDAMYCIN [Suspect]
     Active Substance: CLINDAMYCIN
     Indication: Psoriasis
     Dosage: UNK
     Route: 065
  3. CLOBETASOL [Suspect]
     Active Substance: CLOBETASOL
     Indication: Psoriasis
     Dosage: UNK
     Route: 065
  4. COSENTYX [Suspect]
     Active Substance: SECUKINUMAB
     Indication: Product used for unknown indication
     Dosage: 300 MG, QMO
     Route: 065
     Dates: start: 20230822
  5. COSENTYX [Suspect]
     Active Substance: SECUKINUMAB
     Dosage: 300 MG, QMO
     Route: 065
     Dates: start: 20231009
  6. KETOCONAZOLE [Suspect]
     Active Substance: KETOCONAZOLE
     Indication: Psoriasis
     Route: 065
  7. MINOCYCLINE [Suspect]
     Active Substance: MINOCYCLINE HYDROCHLORIDE
     Indication: Psoriasis
     Dosage: UNK
     Route: 065
  8. MUPIROCIN [Suspect]
     Active Substance: MUPIROCIN
     Indication: Psoriasis
     Route: 065
  9. TRIAMCINOLONE [Suspect]
     Active Substance: TRIAMCINOLONE
     Indication: Product used for unknown indication
     Dosage: UNK
     Route: 065

REACTIONS (11)
  - Dermatitis acneiform [Unknown]
  - Skin mass [Unknown]
  - Abscess [Unknown]
  - Hidradenitis [Unknown]
  - Scar [Unknown]
  - Pustule [Unknown]
  - Pain of skin [Unknown]
  - Papule [Unknown]
  - Pruritus [Unknown]
  - Acne [Unknown]
  - Therapeutic product effect incomplete [Unknown]
